FAERS Safety Report 6454790-7 (Version None)
Quarter: 2009Q4

REPORT INFORMATION
  Report Type: 
  Country: None (occurrence: None)
  Receive Date: 20091124
  Receipt Date: 20091019
  Transmission Date: 20100525
  Serious: Yes (Death)
  Sender: FDA-Public Use
  Company Number: US-BAXTER-2009BH017758

PATIENT
  Sex: Male

DRUGS (3)
  1. DIANEAL [Suspect]
     Indication: PERITONEAL DIALYSIS
     Route: 033
     Dates: start: 20080101, end: 20091001
  2. DIANEAL [Suspect]
     Indication: CARDIAC FAILURE CONGESTIVE
     Route: 033
     Dates: start: 20080101, end: 20091001
  3. DIANEAL [Suspect]
     Indication: PALLIATIVE CARE
     Route: 033
     Dates: start: 20080101, end: 20091001

REACTIONS (1)
  - CARDIOMYOPATHY [None]
